FAERS Safety Report 10825822 (Version 2)
Quarter: 2015Q2

REPORT INFORMATION
  Report Type: Spontaneous
  Country: IT (occurrence: IT)
  Receive Date: 20150219
  Receipt Date: 20150612
  Transmission Date: 20150821
  Serious: Yes (Other)
  Sender: FDA-Public Use
  Company Number: IT-ROCHE-1539159

PATIENT
  Age: 89 Year
  Sex: Female

DRUGS (10)
  1. BISOPROLOL HEMIFUMARATE [Concomitant]
     Active Substance: BISOPROLOL FUMARATE
  2. MONOKET [Concomitant]
     Active Substance: ISOSORBIDE MONONITRATE
     Dosage: ^40 MG TABLETS^ 30 TABLETS
     Route: 048
  3. TACHIDOL [Concomitant]
     Active Substance: ACETAMINOPHEN\CODEINE PHOSPHATE
     Dosage: ^ADULTS 500 MG/30 MG EFFERVESCENT GRANULES^, 10 SACHETS
     Route: 048
  4. TOLEP [Concomitant]
     Active Substance: OXCARBAZEPINE
     Dosage: ^300 MG TABLETS^ 50 SCORED TABLETS
     Route: 048
  5. ALDACTONE (ITALY) [Concomitant]
     Dosage: ^25 MG HARD CAPSULES^ 16 CAPSULES
     Route: 048
  6. NEXIUM [Concomitant]
     Active Substance: ESOMEPRAZOLE MAGNESIUM
     Dosage: ^20 MG GASTRO-RESISTANT TABLETS^
     Route: 048
  7. VALIUM [Suspect]
     Active Substance: DIAZEPAM
     Indication: PRODUCT USED FOR UNKNOWN INDICATION
     Dosage: 5MG / ML ORAL DROPS, SOLUTION ^ 20ML BOTTLE
     Route: 048
  8. CARDIRENE [Concomitant]
     Active Substance: ASPIRIN DL-LYSINE
     Dosage: ^160 MG POWDER FOR ORAL SOLUTION^ 30 SACHETS
     Route: 048
  9. ZYLORIC [Concomitant]
     Active Substance: ALLOPURINOL
     Dosage: ^300 MG TABLETS^ 30 SCORED TABLETS
     Route: 048
  10. LASIX [Concomitant]
     Active Substance: FUROSEMIDE
     Dosage: ^500 MG TABLETS^ 20 TABLETS
     Route: 048

REACTIONS (2)
  - Aggression [Recovering/Resolving]
  - Psychomotor hyperactivity [Recovering/Resolving]

NARRATIVE: CASE EVENT DATE: 20150212
